FAERS Safety Report 10443402 (Version 2)
Quarter: 2014Q4

REPORT INFORMATION
  Report Type: Spontaneous
  Country: US (occurrence: US)
  Receive Date: 20140910
  Receipt Date: 20141104
  Transmission Date: 20150528
  Serious: Yes (Death, Hospitalization)
  Sender: FDA-Public Use
  Company Number: US-UNITED THERAPEUTICS-UNT-2014-007021

PATIENT
  Age: 25 Year
  Sex: Female
  Weight: 47.62 kg

DRUGS (1)
  1. REMODULIN [Suspect]
     Active Substance: TREPROSTINIL
     Indication: COR PULMONALE CHRONIC
     Dosage: 0.039 ?G/KG, CONTINUING
     Route: 058
     Dates: start: 20140514

REACTIONS (2)
  - Shock [Fatal]
  - Sepsis [Unknown]

NARRATIVE: CASE EVENT DATE: 2014
